FAERS Safety Report 8571841-4 (Version None)
Quarter: 2012Q3

REPORT INFORMATION
  Report Type: 
  Country: None (occurrence: None)
  Receive Date: 20120806
  Receipt Date: 20120726
  Transmission Date: 20120928
  Serious: Yes (Hospitalization)
  Sender: FDA-Public Use
  Company Number: IN-NOVOPROD-325438

PATIENT
  Age: 58 Year
  Sex: Male
  Weight: 62.2 kg

DRUGS (12)
  1. METOPROLOL TARTRATE [Concomitant]
     Dosage: 12.5 MG, BID
  2. COMBIFLAM [Concomitant]
     Dosage: UNK MG, UNK
  3. DERIPHYLLIN [Concomitant]
     Dosage: 150 MG, BID
  4. CERUVIN [Concomitant]
     Dosage: 75 MG, QD
  5. VICTOZA [Suspect]
     Indication: TYPE 2 DIABETES MELLITUS
     Dosage: 0.6 MG, QD
     Route: 058
     Dates: start: 20110314, end: 20110318
  6. PANTOCID                           /01263202/ [Concomitant]
     Dosage: 40 MG, QD FOR 15 DAYS
  7. ATORVA [Concomitant]
     Dosage: 20 MG, QD
  8. LASILACTONE [Concomitant]
     Dosage: 50 MG, BID
  9. LINEZOLID [Concomitant]
     Dosage: 600 MG, BID FOR 5 DAYS
  10. DOMSTAL [Concomitant]
     Dosage: 10 MG, PRN
  11. HUMINSULIN                         /00646003/ [Concomitant]
     Dosage: 36 IU, TID 16+6+14
  12. VIZYLAC [Concomitant]
     Dosage: 1 CAPS, QD FOR 1 MONTH

REACTIONS (1)
  - MYOCARDIAL INFARCTION [None]
